FAERS Safety Report 8431484-X (Version None)
Quarter: 2012Q2

REPORT INFORMATION
  Report Type: 
  Country: None (occurrence: None)
  Receive Date: 20120604
  Receipt Date: 20120521
  Transmission Date: 20120825
  Serious: Yes (Other)
  Sender: FDA-Public Use
  Company Number: 2011MA002473

PATIENT
  Sex: Female

DRUGS (5)
  1. NASONEX [Concomitant]
  2. CLARITHROMYCIN [Concomitant]
  3. METOCLOPRAMIDE [Suspect]
     Dosage: 10 MG: AC + HS; PO
     Route: 048
     Dates: start: 20090306, end: 20090723
  4. OMEPRAZOLE [Concomitant]
  5. SINGULAIR [Concomitant]

REACTIONS (8)
  - TREMOR [None]
  - ECONOMIC PROBLEM [None]
  - EXTRAPYRAMIDAL DISORDER [None]
  - INJURY [None]
  - EMOTIONAL DISORDER [None]
  - TARDIVE DYSKINESIA [None]
  - DYSTONIA [None]
  - AKATHISIA [None]
